FAERS Safety Report 26130770 (Version 1)
Quarter: 2025Q4

REPORT INFORMATION
  Report Type: Spontaneous
  Country: CN (occurrence: CN)
  Receive Date: 20251208
  Receipt Date: 20251208
  Transmission Date: 20260118
  Serious: Yes (Death, Life-Threatening, Other)
  Sender: AMGEN
  Company Number: CN-AMGEN-CHNSP2025240391

PATIENT

DRUGS (3)
  1. BLINATUMOMAB [Suspect]
     Active Substance: BLINATUMOMAB
     Indication: B-cell type acute leukaemia
     Dosage: 9 MICROGRAM, QD VIA CONTINUOUS 24-HOUR INFUSION
     Route: 040
  2. BLINATUMOMAB [Suspect]
     Active Substance: BLINATUMOMAB
     Dosage: 28 MICROGRAM, QD
     Route: 040
  3. DEXAMETHASONE [Concomitant]
     Active Substance: DEXAMETHASONE
     Indication: Prophylaxis
     Dosage: 20 MILLIGRAM
     Route: 065

REACTIONS (26)
  - Treatment failure [Fatal]
  - Febrile neutropenia [Unknown]
  - Anaemia [Unknown]
  - Neutropenia [Unknown]
  - Thrombosis [Unknown]
  - Hypothyroidism [Unknown]
  - Sepsis [Unknown]
  - Thrombocytopenia [Unknown]
  - Tumour lysis syndrome [Unknown]
  - Anal abscess [Unknown]
  - Pneumonia [Unknown]
  - Device related infection [Unknown]
  - Cytokine release syndrome [Unknown]
  - Alanine aminotransferase increased [Unknown]
  - Oedema peripheral [Unknown]
  - Pleural effusion [Unknown]
  - Headache [Unknown]
  - Stomatitis [Unknown]
  - Back pain [Unknown]
  - Pyrexia [Unknown]
  - Mouth ulceration [Unknown]
  - Myalgia [Unknown]
  - Aspartate aminotransferase increased [Unknown]
  - Tremor [Unknown]
  - Gamma-glutamyltransferase increased [Unknown]
  - Arthralgia [Unknown]
